FAERS Safety Report 16668484 (Version 1)
Quarter: 2019Q3

REPORT INFORMATION
  Report Type: Spontaneous
  Country: US (occurrence: US)
  Receive Date: 20190803
  Receipt Date: 20190803
  Transmission Date: 20191004
  Serious: Yes (Hospitalization, Disabling)
  Sender: FDA-Public Use
  Company Number: None

PATIENT
  Age: 26 Year
  Sex: Male

DRUGS (2)
  1. ALPRAZOLAM 1MG TABLETS, 90 COUNT [Suspect]
     Active Substance: ALPRAZOLAM
     Indication: GENERALISED ANXIETY DISORDER
     Dates: start: 20120101, end: 20140326
  2. TRINTELLIX [Concomitant]
     Active Substance: VORTIOXETINE HYDROBROMIDE

REACTIONS (12)
  - Temperature intolerance [None]
  - Ocular discomfort [None]
  - Exercise tolerance decreased [None]
  - Gait disturbance [None]
  - Head discomfort [None]
  - Coordination abnormal [None]
  - Poor quality sleep [None]
  - Tinnitus [None]
  - Balance disorder [None]
  - Fatigue [None]
  - Pain [None]
  - Hypoaesthesia [None]

NARRATIVE: CASE EVENT DATE: 20140326
